FAERS Safety Report 11938406 (Version 2)
Quarter: 2016Q1

REPORT INFORMATION
  Report Type: Spontaneous
  Country: SE (occurrence: SE)
  Receive Date: 20160122
  Receipt Date: 20160211
  Transmission Date: 20160526
  Serious: Yes (Hospitalization, Other)
  Sender: FDA-Public Use
  Company Number: SE-ASTELLAS-2016US001139

PATIENT
  Age: 77 Year
  Sex: Male

DRUGS (9)
  1. AMLODIPIN                          /00972401/ [Concomitant]
     Active Substance: AMLODIPINE BESYLATE
     Indication: BLOOD PRESSURE ABNORMAL
     Route: 048
  2. FINASTERID [Concomitant]
     Indication: BENIGN PROSTATIC HYPERPLASIA
     Route: 065
  3. SIMVASTATIN. [Concomitant]
     Active Substance: SIMVASTATIN
     Indication: BLOOD CHOLESTEROL
     Route: 065
  4. SELOKENZOC [Suspect]
     Active Substance: METOPROLOL SUCCINATE
     Indication: BLOOD PRESSURE ABNORMAL
     Route: 048
  5. BETMIGA [Suspect]
     Active Substance: MIRABEGRON
     Indication: HYPERTONIC BLADDER
     Dosage: UNK UNK HALF TABLET ONCE DAILY
     Route: 048
     Dates: start: 20151222
  6. ALLOPURINOL. [Concomitant]
     Active Substance: ALLOPURINOL
     Indication: GOUT
     Route: 048
  7. ALFUZOSIN [Suspect]
     Active Substance: ALFUZOSIN
     Indication: LOWER URINARY TRACT SYMPTOMS
     Route: 048
  8. WARAN [Concomitant]
     Active Substance: WARFARIN SODIUM
     Indication: CARDIAC VALVE REPLACEMENT COMPLICATION
     Dosage: UNK UNK, UNKNOWN FREQ.
     Route: 065
  9. BETMIGA [Suspect]
     Active Substance: MIRABEGRON
     Route: 048
     Dates: end: 20160118

REACTIONS (3)
  - Tachycardia [Recovered/Resolved]
  - Wrong technique in product usage process [Unknown]
  - Cardiac fibrillation [Not Recovered/Not Resolved]

NARRATIVE: CASE EVENT DATE: 20160110
